FAERS Safety Report 9236043 (Version 3)
Quarter: 2013Q4

REPORT INFORMATION
  Report Type: Spontaneous
  Country: IT (occurrence: IT)
  Receive Date: 20130417
  Receipt Date: 20131220
  Transmission Date: 20140711
  Serious: Yes (Death, Hospitalization, Other)
  Sender: FDA-Public Use
  Company Number: IT-COVIDIEN/TYCO HEALTHCARE/MALLINCKRODT-T201301627

PATIENT
  Age: 70 Year
  Sex: Female

DRUGS (2)
  1. EXALGO EXTENDED RELEASE [Suspect]
     Indication: ANALGESIC THERAPY
     Dosage: 32 MG, QD
     Route: 048
     Dates: start: 20130314, end: 20130316
  2. EXALGO EXTENDED RELEASE [Suspect]
     Indication: PAIN
     Dosage: 4 MG,
     Route: 048
     Dates: start: 20130316

REACTIONS (5)
  - Coma [Fatal]
  - Respiratory depression [Fatal]
  - Miosis [Fatal]
  - Atrial fibrillation [Unknown]
  - Toxicity to various agents [Unknown]
